FAERS Safety Report 19888349 (Version 1)
Quarter: 2021Q3

REPORT INFORMATION
  Report Type: Spontaneous
  Country: US (occurrence: US)
  Receive Date: 20210927
  Receipt Date: 20210927
  Transmission Date: 20211014
  Serious: Yes (Other)
  Sender: FDA-Public Use
  Company Number: None

PATIENT
  Sex: Female

DRUGS (2)
  1. DORZOLAMIDE?TIMOLOL [Suspect]
     Active Substance: DORZOLAMIDE\TIMOLOL
  2. LATANOPROST. [Suspect]
     Active Substance: LATANOPROST

REACTIONS (6)
  - Treatment failure [None]
  - Drug ineffective [None]
  - Ocular hyperaemia [None]
  - Skin exfoliation [None]
  - Eye pain [None]
  - Eye pruritus [None]
